FAERS Safety Report 13641246 (Version 3)
Quarter: 2017Q2

REPORT INFORMATION
  Report Type: Spontaneous
  Country: CA (occurrence: CA)
  Receive Date: 20170612
  Receipt Date: 20170620
  Transmission Date: 20170830
  Serious: Yes (Disabling, Other)
  Sender: FDA-Public Use
  Company Number: CA-CONCORDIA PHARMACEUTICALS INC.-GSH201706-003365

PATIENT
  Sex: Female

DRUGS (11)
  1. PLAQUENIL [Suspect]
     Active Substance: HYDROXYCHLOROQUINE SULFATE
     Indication: RHEUMATOID ARTHRITIS
     Route: 048
     Dates: start: 2015, end: 201703
  2. METHOTREXATE. [Concomitant]
     Active Substance: METHOTREXATE
     Dates: start: 201410
  3. FOLIC ACID. [Concomitant]
     Active Substance: FOLIC ACID
  4. BACTRIM [Concomitant]
     Active Substance: SULFAMETHOXAZOLE\TRIMETHOPRIM
  5. KEFLEX [Concomitant]
     Active Substance: CEPHALEXIN
  6. ARAVA [Suspect]
     Active Substance: LEFLUNOMIDE
     Route: 048
     Dates: start: 201603, end: 201703
  7. ALDACTONE [Concomitant]
     Active Substance: SPIRONOLACTONE
  8. SULFASALAZINE. [Concomitant]
     Active Substance: SULFASALAZINE
  9. ARAVA [Suspect]
     Active Substance: LEFLUNOMIDE
     Indication: RHEUMATOID ARTHRITIS
     Route: 048
     Dates: start: 201511
  10. PREDNISONE. [Concomitant]
     Active Substance: PREDNISONE
     Dates: start: 201410
  11. SYNTHROID [Concomitant]
     Active Substance: LEVOTHYROXINE SODIUM

REACTIONS (3)
  - Nerve injury [Recovering/Resolving]
  - Mycobacterium tuberculosis complex test positive [Recovering/Resolving]
  - Rheumatoid arthritis [Recovering/Resolving]
